FAERS Safety Report 14615481 (Version 2)
Quarter: 2018Q4

REPORT INFORMATION
  Report Type: Spontaneous
  Country: FR (occurrence: FR)
  Receive Date: 20180308
  Receipt Date: 20181026
  Transmission Date: 20190204
  Serious: Yes (Other)
  Sender: FDA-Public Use
  Company Number: FR-MERCK KGAA-2043362

PATIENT
  Age: 71 Year
  Sex: Female

DRUGS (1)
  1. EUTHYROX [Suspect]
     Active Substance: LEVOTHYROXINE SODIUM
     Indication: PRODUCT USED FOR UNKNOWN INDICATION

REACTIONS (21)
  - Diarrhoea [None]
  - Memory impairment [None]
  - Hypoacusis [None]
  - Nausea [None]
  - Malaise [None]
  - Muscle spasms [None]
  - Alopecia areata [None]
  - Insomnia [None]
  - Dizziness [None]
  - Fatigue [None]
  - Musculoskeletal pain [None]
  - Visual impairment [None]
  - Tri-iodothyronine free decreased [None]
  - Arthralgia [None]
  - Loss of libido [None]
  - Pain [None]
  - Anxiety [None]
  - Blood thyroid stimulating hormone increased [None]
  - Loss of personal independence in daily activities [None]
  - Impaired driving ability [None]
  - Social avoidant behaviour [None]

NARRATIVE: CASE EVENT DATE: 20170913
